FAERS Safety Report 9677226 (Version 1)
Quarter: 2013Q4

REPORT INFORMATION
  Report Type: Spontaneous
  Country: US (occurrence: US)
  Receive Date: 20131108
  Receipt Date: 20131108
  Transmission Date: 20140711
  Serious: No
  Sender: FDA-Public Use
  Company Number: US-CUBIST PHARMACEUTICAL, INC.-2013CBST000684

PATIENT
  Sex: 0

DRUGS (11)
  1. CUBICIN [Suspect]
     Indication: ENTEROCOCCAL BACTERAEMIA
     Dosage: 5.9 MG/KG (10 ML), QD
     Route: 042
     Dates: start: 20130807
  2. CUBICIN [Suspect]
     Indication: OFF LABEL USE
     Dosage: 765 MG (10 ML), QD
     Route: 042
     Dates: start: 20130807
  3. WARFARIN [Concomitant]
     Indication: DEEP VEIN THROMBOSIS
     Dosage: 5 MG, QD
     Route: 048
     Dates: start: 20130806
  4. WARFARIN [Concomitant]
     Dosage: 7.5 MG, QD
     Route: 048
     Dates: start: 20130807
  5. FLEXERIL                           /00428402/ [Concomitant]
     Indication: PRODUCT USED FOR UNKNOWN INDICATION
     Dosage: 10 MG, TID
     Route: 048
  6. LOVENOX [Concomitant]
     Indication: DEEP VEIN THROMBOSIS
     Dosage: 120 MG, BID, SUBCUTANEOUS OR INTRAVENOUS
     Dates: start: 20130806
  7. DILAUDID [Concomitant]
     Indication: PAIN
     Dosage: 0.4-1 MG, Q2H PRN
     Route: 042
  8. OXYCODONE [Concomitant]
     Indication: PAIN
     Dosage: 15 MG, Q3H PRN
     Route: 048
  9. ZOSYN [Concomitant]
     Indication: INFECTION
     Dosage: 3.75 G, Q8H
     Route: 042
  10. ZOSYN [Concomitant]
     Dosage: 11.25 G
     Route: 042
  11. METHADONE [Concomitant]
     Indication: PAIN
     Dosage: 20 MG, TID
     Route: 048

REACTIONS (1)
  - International normalised ratio increased [Unknown]
